FAERS Safety Report 17547331 (Version 1)
Quarter: 2020Q1

REPORT INFORMATION
  Report Type: Spontaneous
  Country: NL (occurrence: NL)
  Receive Date: 20200316
  Receipt Date: 20200316
  Transmission Date: 20200409
  Serious: Yes (Life-Threatening)
  Sender: FDA-Public Use
  Company Number: NL-MYLANLABS-2020M1026978

PATIENT
  Age: 40 Year
  Sex: Female

DRUGS (4)
  1. SUBOXONE [Interacting]
     Active Substance: BUPRENORPHINE HYDROCHLORIDE\NALOXONE HYDROCHLORIDE
     Indication: PRODUCT USED FOR UNKNOWN INDICATION
     Dosage: TABLET, 8/2 MG (MILLIGRAM), 1 KEER PER DAG, 1
     Dates: start: 2020
  2. AMISULPRIDE [Concomitant]
     Active Substance: AMISULPRIDE
     Dosage: TABLET, 400 MG (MILLIGRAM)
  3. DIAZEPAM. [Suspect]
     Active Substance: DIAZEPAM
     Indication: PRODUCT USED FOR UNKNOWN INDICATION
     Dosage: TABLET, 5 MG (MILLIGRAM)
  4. QUETIAPINE. [Concomitant]
     Active Substance: QUETIAPINE
     Dosage: FILMOMHULDE TABLET, 200 MG (MILLIGRAM)

REACTIONS (2)
  - Respiratory depression [Recovered/Resolved]
  - Potentiating drug interaction [Recovered/Resolved]

NARRATIVE: CASE EVENT DATE: 20200111
